FAERS Safety Report 21698237 (Version 1)
Quarter: 2022Q4

REPORT INFORMATION
  Report Type: Spontaneous
  Country: None (occurrence: PT)
  Receive Date: 20221208
  Receipt Date: 20221208
  Transmission Date: 20230113
  Serious: Yes (Hospitalization, Other)
  Sender: FDA-Public Use
  Company Number: PT-Therakind Limited-2135667

PATIENT
  Age: 75 Year
  Sex: Female

DRUGS (3)
  1. METHOTREXATE [Suspect]
     Active Substance: METHOTREXATE
  2. HYDROXYCHLOROQUINE [Concomitant]
     Active Substance: HYDROXYCHLOROQUINE
  3. PREDNISOLONE [Concomitant]
     Active Substance: PREDNISOLONE

REACTIONS (3)
  - Off label use [Unknown]
  - Hepatic neoplasm [Recovered/Resolved]
  - Pulmonary mass [Recovered/Resolved]
